FAERS Safety Report 10252578 (Version 1)
Quarter: 2014Q2

REPORT INFORMATION
  Report Type: Spontaneous
  Country: US (occurrence: None)
  Receive Date: 20140619
  Receipt Date: 20140619
  Transmission Date: 20141212
  Serious: No
  Sender: FDA-Public Use
  Company Number: SYM-2013-05543

PATIENT
  Sex: Female

DRUGS (3)
  1. APLENZIN (BUPROPION HYDROBROMIDE) (BUPROPION HYDROBROMIDE) [Suspect]
     Indication: DEPRESSION
     Dates: start: 201106
  2. ORTHO TRI-CYCLEN (CLILEST)(ETHINYLESTRADIOL, NORGESTIMATE) [Concomitant]
  3. ZOLOFT [Suspect]

REACTIONS (2)
  - Metrorrhagia [None]
  - Anxiety [None]
